FAERS Safety Report 5158443-7 (Version None)
Quarter: 2006Q4

REPORT INFORMATION
  Report Type: 
  Country: None (occurrence: None)
  Receive Date: 20061128
  Receipt Date: 20020724
  Transmission Date: 20070319
  Serious: Yes (Congenital Anomaly)
  Sender: FDA-Public Use
  Company Number: FR-AVENTIS-200621966GDDC

PATIENT
  Sex: Female

DRUGS (9)
  1. SOLUPRED                           /00016201/ [Suspect]
  2. TELFAST                            /01314201/ [Suspect]
     Dosage: DOSE: 1 TBL
     Route: 048
  3. AUGMENTIN [Suspect]
  4. EUPHYLLIN                          /00012201/ [Suspect]
  5. OXEOL [Concomitant]
     Dosage: DOSE: 1 TBL
  6. PROPULSID [Concomitant]
     Dosage: DOSE: 2 TBL
  7. SINGULAIR [Concomitant]
     Dosage: DOSE: 1 TBL
  8. SOLU-MEDROL [Concomitant]
  9. SURBRONC [Concomitant]
     Dosage: DOSE: 2 DF

REACTIONS (3)
  - CAESAREAN SECTION [None]
  - CONGENITAL ANOMALY [None]
  - DRUG EXPOSURE DURING PREGNANCY [None]
